FAERS Safety Report 8843162 (Version 4)
Quarter: 2013Q1

REPORT INFORMATION
  Report Type: Spontaneous
  Country: JP (occurrence: JP)
  Receive Date: 20121016
  Receipt Date: 20130122
  Transmission Date: 20140127
  Serious: Yes (Death, Other)
  Sender: FDA-Public Use
  Company Number: JP-PFIZER INC-2012256217

PATIENT
  Age: 71 Year
  Sex: Male
  Weight: 53 kg

DRUGS (43)
  1. NOVASTAN [Suspect]
     Indication: HEPARIN-INDUCED THROMBOCYTOPENIA
     Dosage: 90 MG/ DAY
     Route: 042
     Dates: start: 20110716, end: 20120410
  2. NOVASTAN [Suspect]
     Dosage: 100 MG/DAY
     Route: 042
     Dates: start: 20120412, end: 20120929
  3. LIVALO [Suspect]
     Indication: HYPERLIPIDAEMIA
     Dosage: 2 MG, 1X/DAY
     Route: 048
     Dates: start: 20110705, end: 20120929
  4. SELBEX [Suspect]
     Indication: GASTRIC ULCER
     Dosage: 150 MG, 3X/DAY
     Route: 048
     Dates: start: 20110705, end: 20120929
  5. ROCALTROL [Suspect]
     Indication: HYPERLIPIDAEMIA
     Dosage: 0.25 DF, 1X/DAY
     Route: 048
     Dates: start: 20111115
  6. ROCALTROL [Suspect]
     Dosage: 0.5 DF, 2X/DAY
     Route: 048
     Dates: start: 20111211
  7. ROCALTROL [Suspect]
     Dosage: UNK
     Route: 048
     Dates: end: 20120929
  8. EPOETIN [Concomitant]
     Dosage: 3000 DF, 3 IN 1 WK
     Route: 051
     Dates: start: 20110702, end: 20111215
  9. EPOETIN [Concomitant]
     Dosage: 1500 DF, 3 IN 1 WK
     Route: 051
     Dates: start: 20120621
  10. DIOVAN [Concomitant]
     Dosage: 40 MG, 2X/DAY
     Route: 048
     Dates: start: 20110705
  11. DIOVAN [Concomitant]
     Dosage: 80 MG, 2X/DAY
     Route: 048
     Dates: start: 20111211
  12. DIOVAN [Concomitant]
     Dosage: 40 MG, 2X/DAY
     Route: 048
     Dates: start: 20120218
  13. DIOVAN [Concomitant]
     Dosage: 80 MG, 1X/DAY
     Route: 048
     Dates: start: 20120319
  14. MAINTATE [Concomitant]
     Dosage: 2.5 MG, 2X/DAY
     Route: 048
     Dates: start: 20110705
  15. AMOBAN [Concomitant]
     Dosage: 7.5 DF, 1X/DAY
     Route: 048
     Dates: start: 20110705, end: 20111231
  16. AMOBAN [Concomitant]
     Dosage: 0.5 DF, 1X/DAY
     Route: 048
     Dates: start: 20120802
  17. MILLISROL [Concomitant]
     Dosage: 5 MG, 1X/DAY
     Route: 061
     Dates: start: 20110705
  18. FUROSEMIDE [Concomitant]
     Dosage: 80 DF, UNK
     Route: 048
     Dates: start: 20110719
  19. FERRICON [Concomitant]
     Dosage: 1 IN 1 WK
     Route: 051
     Dates: start: 20110811
  20. SENNOSIDE A+B [Concomitant]
     Dosage: 2 DF, 1X/DAY
     Route: 048
     Dates: start: 20110811
  21. FESIN [Concomitant]
     Dosage: 1 IN 1WK
     Route: 051
     Dates: start: 20110811, end: 20120204
  22. CARDENALIN [Concomitant]
     Dosage: 2 MG, 1X/DAY
     Route: 048
     Dates: start: 20111211
  23. CARDENALIN [Concomitant]
     Dosage: 2 MG, 2X/WEEK
     Route: 048
     Dates: start: 20120821
  24. ARTIST [Concomitant]
     Dosage: 20 MG, 2X/DAY
     Route: 048
     Dates: start: 20111211
  25. ARTIST [Concomitant]
     Dosage: 5 MG, 2X/DAY
     Route: 048
     Dates: start: 20120319
  26. NESP [Concomitant]
     Dosage: 60 DF, WEEKLY
     Route: 051
     Dates: start: 20111213, end: 20120204
  27. NESP [Concomitant]
     Dosage: 30 DF, WEEKLY
     Route: 051
     Dates: start: 20120419, end: 20120621
  28. MYSLEE [Concomitant]
     Dosage: 10 MG, 1X/DAY
     Route: 048
     Dates: start: 20111228
  29. MYSLEE [Concomitant]
     Dosage: 5 MG, 1X/DAY
     Route: 048
     Dates: start: 20120218
  30. MYSLEE [Concomitant]
     Dosage: 10 MG, 1X/DAY
     Route: 048
     Dates: start: 20120319
  31. TENORMIN [Concomitant]
     Dosage: 50 DF, 1X/DAY
     Route: 048
  32. LIPOVAS [Concomitant]
     Dosage: 5 DF, 1X/DAY
     Route: 048
  33. FRANDOL [Concomitant]
     Dosage: 40 DF, 1X/DAY
     Route: 061
  34. GASTROM [Concomitant]
     Dosage: 1.5 DF, 2X/DAY
     Route: 048
  35. MICARDIS [Concomitant]
     Dosage: 40 DF, 2X/DAY
     Route: 048
  36. ADALAT CR [Concomitant]
     Dosage: 60 MG, UNK
     Route: 048
  37. ADALAT CR [Concomitant]
     Dosage: 40 MG (20 MG, ON NON- DIALYSIS DAY)
     Dates: start: 20110705
  38. ADALAT CR [Concomitant]
     Dosage: 40 MG, 1X/DAY
     Dates: start: 20111211
  39. LASIX [Concomitant]
     Dosage: 60 DF, 1X/DAY
     Route: 048
  40. LENDORMIN [Concomitant]
     Dosage: 0.25 DF, 1X/DAY
     Route: 048
  41. NAFAMOSTAT MESILATE [Concomitant]
     Route: 051
  42. ROCALTROL [Concomitant]
     Dosage: 1 DOSAGE FORMS, 3 IN 1 WK
     Route: 051
     Dates: start: 20110723, end: 20111008
  43. ROCALTROL [Concomitant]
     Dosage: 0.5 DF, 2X/WEEK
     Route: 051
     Dates: start: 20111008, end: 20111112

REACTIONS (4)
  - Death [Fatal]
  - Cerebral infarction [Unknown]
  - Aortic aneurysm [Unknown]
  - Aortic dissection [Unknown]
